FAERS Safety Report 7820997-7 (Version None)
Quarter: 2011Q4

REPORT INFORMATION
  Report Type: 
  Country: None (occurrence: None)
  Receive Date: 20111018
  Receipt Date: 20111013
  Transmission Date: 20120403
  Serious: Yes (Life-Threatening)
  Sender: FDA-Public Use
  Company Number: US-KINGPHARMUSA00001-K201101170

PATIENT
  Age: 51 Year
  Sex: Female

DRUGS (3)
  1. EMBEDA [Suspect]
     Indication: BACK PAIN
     Dosage: 40 MG, EVERY 12 HOURS (3 TOTAL 40 MG DOSES)
     Route: 048
     Dates: start: 20110301, end: 20110302
  2. TOPAMAX [Concomitant]
     Indication: HEADACHE
  3. LEVOTHYROXINE SODIUM [Concomitant]
     Indication: HYPOTHYROIDISM

REACTIONS (12)
  - HEADACHE [None]
  - CHEST DISCOMFORT [None]
  - TREMOR [None]
  - HYPERSENSITIVITY [None]
  - PRURITUS [None]
  - DRY MOUTH [None]
  - NERVOUS SYSTEM DISORDER [None]
  - DYSPNOEA [None]
  - VISION BLURRED [None]
  - RASH GENERALISED [None]
  - NAUSEA [None]
  - INSOMNIA [None]
